FAERS Safety Report 17760125 (Version 1)
Quarter: 2020Q2

REPORT INFORMATION
  Report Type: Spontaneous
  Country: FR (occurrence: FR)
  Receive Date: 20200508
  Receipt Date: 20200508
  Transmission Date: 20200714
  Serious: Yes (Disabling)
  Sender: FDA-Public Use
  Company Number: FR-ACCORD-181259

PATIENT
  Sex: Female
  Weight: 10 kg

DRUGS (1)
  1. SERTRALINE [Suspect]
     Active Substance: SERTRALINE HYDROCHLORIDE
     Indication: DEPRESSION
     Route: 064

REACTIONS (2)
  - Dysgraphia [Not Recovered/Not Resolved]
  - Speech disorder developmental [Recovering/Resolving]

NARRATIVE: CASE EVENT DATE: 2017
